FAERS Safety Report 7477814-7 (Version None)
Quarter: 2011Q2

REPORT INFORMATION
  Report Type: 
  Country: None (occurrence: None)
  Receive Date: 20110513
  Receipt Date: 20110429
  Transmission Date: 20111010
  Serious: Yes (Hospitalization)
  Sender: FDA-Public Use
  Company Number: US-ELI_LILLY_AND_COMPANY-US201104001023

PATIENT
  Sex: Female

DRUGS (8)
  1. FORTEO [Suspect]
     Indication: OSTEOPOROSIS
     Dosage: 20 UG, QD
     Route: 058
     Dates: start: 20110201
  2. TOPRAL [Concomitant]
  3. HYDROCHLOROTHIAZIDE [Concomitant]
  4. LISINOPRIL [Concomitant]
  5. ASPIRIN [Concomitant]
     Dosage: UNK UNK, UNKNOWN
  6. CALCIUM [Concomitant]
     Dosage: UNK UNK, UNKNOWN
  7. VITAMIN D [Concomitant]
     Dosage: 1000 UG, UNKNOWN
  8. FOLIC ACID [Concomitant]
     Dosage: 1 MG, UNKNOWN

REACTIONS (1)
  - ARTERIOSCLEROSIS [None]
